FAERS Safety Report 8093109-5 (Version None)
Quarter: 2012Q1

REPORT INFORMATION
  Report Type: 
  Country: None (occurrence: None)
  Receive Date: 20120128
  Receipt Date: 20111004
  Transmission Date: 20120608
  Serious: No
  Sender: FDA-Public Use
  Company Number: US-ABBOTT-11P-163-0849471-00

PATIENT
  Sex: Female
  Weight: 106.69 kg

DRUGS (11)
  1. SOTALOL HCL [Concomitant]
     Indication: BLOOD PRESSURE
  2. KLONOPIN [Concomitant]
     Indication: INSOMNIA
  3. SIMVASTATIN [Concomitant]
     Indication: PRODUCT USED FOR UNKNOWN INDICATION
  4. HUMIRA [Suspect]
     Indication: RHEUMATOID ARTHRITIS
     Route: 058
     Dates: start: 20110426, end: 20110801
  5. MULTI-VITAMIN [Concomitant]
     Indication: PRODUCT USED FOR UNKNOWN INDICATION
  6. UNKNOWN HEART MED [Concomitant]
     Indication: PRODUCT USED FOR UNKNOWN INDICATION
  7. BENADRYL [Concomitant]
     Indication: HYPERSENSITIVITY
  8. GABAPENTIN [Concomitant]
     Indication: NEUROPATHY PERIPHERAL
  9. HUMIRA [Suspect]
     Indication: PSORIASIS
  10. FISH OIL [Concomitant]
     Indication: BLOOD CHOLESTEROL
  11. TEMAZEPAM [Concomitant]
     Indication: INSOMNIA

REACTIONS (1)
  - PSORIASIS [None]
